FAERS Safety Report 9205222 (Version 1)
Quarter: 2013Q2

REPORT INFORMATION
  Report Type: Report from Study
  Country: IT (occurrence: IT)
  Receive Date: 20130402
  Receipt Date: 20130402
  Transmission Date: 20140414
  Serious: Yes (Death, Hospitalization)
  Sender: FDA-Public Use
  Company Number: IT-PFIZER INC-IT-WYE-H10022909

PATIENT
  Age: 73 Year
  Sex: Female
  Weight: 44 kg

DRUGS (3)
  1. MYLOTARG [Suspect]
     Indication: ACUTE MYELOID LEUKAEMIA
     Dosage: 4.5 MG, WEEKLY
     Route: 042
     Dates: start: 20090328, end: 20090608
  2. PREDNISOLONE [Concomitant]
     Indication: THROMBOCYTOSIS
     Dosage: 20 MG, 2X/DAY
     Route: 042
     Dates: start: 20090622, end: 20090623
  3. SODIUM BICARBONATE [Concomitant]
     Indication: RENAL FAILURE
     Dosage: 500 MG, 2X/DAY
     Route: 042
     Dates: start: 20090619, end: 20090621

REACTIONS (2)
  - Cerebral artery thrombosis [Fatal]
  - Renal failure acute [Not Recovered/Not Resolved]
